FAERS Safety Report 6624571-X (Version None)
Quarter: 2010Q1

REPORT INFORMATION
  Report Type: 
  Country: None (occurrence: None)
  Receive Date: 20100310
  Receipt Date: 20091001
  Transmission Date: 20100710
  Serious: No
  Sender: FDA-Public Use
  Company Number: US-BIOGENIDEC-2009BI031564

PATIENT
  Age: 50 Year
  Sex: Female

DRUGS (6)
  1. AVONEX [Suspect]
     Indication: MULTIPLE SCLEROSIS
     Route: 030
     Dates: start: 20090601
  2. MORPHINE [Concomitant]
     Indication: BACK PAIN
     Dates: start: 20060101
  3. NEURONTIN [Concomitant]
     Indication: MUSCLE SPASMS
  4. TEMAZEPAM [Concomitant]
     Indication: INSOMNIA
  5. LIPITOR [Concomitant]
     Indication: BLOOD CHOLESTEROL INCREASED
  6. CLONAZEPAM [Concomitant]
     Indication: MOOD SWINGS

REACTIONS (4)
  - DRUG EFFECT DECREASED [None]
  - MEMORY IMPAIRMENT [None]
  - PAIN IN EXTREMITY [None]
  - SLUGGISHNESS [None]
